FAERS Safety Report 7054547-2 (Version None)
Quarter: 2010Q4

REPORT INFORMATION
  Report Type: 
  Country: None (occurrence: None)
  Receive Date: 20101020
  Receipt Date: 20101014
  Transmission Date: 20110411
  Serious: Yes (Hospitalization)
  Sender: FDA-Public Use
  Company Number: JP-ABBOTT-10P-087-0672174-00

PATIENT
  Sex: Male
  Weight: 63 kg

DRUGS (6)
  1. CLARITH TAB [Suspect]
     Indication: UPPER RESPIRATORY TRACT INFLAMMATION
     Route: 048
     Dates: start: 20091028, end: 20091028
  2. TAMIFLU [Suspect]
     Indication: INFLUENZA
     Route: 048
     Dates: start: 20091028, end: 20091028
  3. NIFLAN [Concomitant]
     Indication: UPPER RESPIRATORY TRACT INFLAMMATION
     Route: 048
     Dates: start: 20091028, end: 20091028
  4. HISPORAN [Concomitant]
     Indication: UPPER RESPIRATORY TRACT INFLAMMATION
     Dosage: 9 MG DAILY
     Route: 048
     Dates: start: 20091028, end: 20091028
  5. TOCLASE S [Concomitant]
     Indication: UPPER RESPIRATORY TRACT INFLAMMATION
     Route: 048
     Dates: start: 20091028, end: 20091028
  6. COLEPOLI-R [Concomitant]
     Indication: UPPER RESPIRATORY TRACT INFLAMMATION
     Route: 048
     Dates: start: 20091028, end: 20091028

REACTIONS (1)
  - ENTEROCOLITIS HAEMORRHAGIC [None]
